FAERS Safety Report 5061324-0 (Version None)
Quarter: 2006Q3

REPORT INFORMATION
  Report Type: 
  Country: None (occurrence: None)
  Receive Date: 20060719
  Receipt Date: 20060719
  Transmission Date: 20061208
  Serious: No
  Sender: FDA-Public Use
  Company Number: None

PATIENT
  Sex: Male
  Weight: 52.3 kg

DRUGS (1)
  1. MORPHINE [Suspect]
     Indication: POSTOPERATIVE ANALGESIA
     Dosage: CONTINUOUS + DEMAND PCA IV
     Route: 042
     Dates: start: 20060412

REACTIONS (2)
  - RESPIRATORY DEPRESSION [None]
  - SEDATION [None]
